FAERS Safety Report 4510151-9 (Version None)
Quarter: 2004Q4

REPORT INFORMATION
  Report Type: 
  Country: None (occurrence: None)
  Receive Date: 20041119
  Receipt Date: 20041110
  Transmission Date: 20050328
  Serious: Yes (Hospitalization)
  Sender: FDA-Public Use
  Company Number: 2004-11-0091

PATIENT
  Age: 73 Year
  Sex: Male

DRUGS (5)
  1. TEMODAL [Suspect]
     Indication: NON-HODGKIN'S LYMPHOMA
     Dosage: 250 MG
     Dates: start: 20041026, end: 20041101
  2. METHOTREXATE [Suspect]
     Indication: NON-HODGKIN'S LYMPHOMA
     Dosage: 5.4 G INTRAVENOUS
     Route: 042
     Dates: start: 20041027, end: 20041027
  3. MEDROL [Concomitant]
  4. DIAMICRON [Concomitant]
  5. LIPANTHYL [Concomitant]

REACTIONS (7)
  - DEHYDRATION [None]
  - DIARRHOEA [None]
  - DRUG TOXICITY [None]
  - NEUTROPENIA [None]
  - OVERDOSE [None]
  - RENAL FAILURE ACUTE [None]
  - THROMBOCYTOPENIA [None]
